FAERS Safety Report 7320409-6 (Version None)
Quarter: 2011Q1

REPORT INFORMATION
  Report Type: 
  Country: None (occurrence: None)
  Receive Date: 20110228
  Receipt Date: 20110221
  Transmission Date: 20110831
  Serious: Yes (Hospitalization)
  Sender: FDA-Public Use
  Company Number: A0897759A

PATIENT
  Age: 72 Year
  Sex: Male

DRUGS (7)
  1. CELEBREX [Concomitant]
  2. GLYBURIDE [Concomitant]
  3. FLOMAX [Concomitant]
  4. CAPTOPRIL [Concomitant]
  5. AVANDIA [Suspect]
     Indication: DIABETES MELLITUS
     Dosage: 8MG PER DAY
     Route: 048
     Dates: start: 20011105, end: 20070602
  6. XANAX [Concomitant]
  7. ZOCOR [Concomitant]

REACTIONS (3)
  - MYOCARDIAL INFARCTION [None]
  - HAEMORRHAGIC STROKE [None]
  - PLEURAL EFFUSION [None]
